FAERS Safety Report 21408816 (Version 1)
Quarter: 2022Q4

REPORT INFORMATION
  Report Type: Report from Study
  Country: US (occurrence: US)
  Receive Date: 20221004
  Receipt Date: 20221004
  Transmission Date: 20230112
  Serious: Yes (Other)
  Sender: FDA-Public Use
  Company Number: US-ABBVIE-4135715

PATIENT
  Sex: Male

DRUGS (1)
  1. SKYRIZI [Suspect]
     Active Substance: RISANKIZUMAB-RZAA
     Indication: Product used for unknown indication
     Route: 030

REACTIONS (5)
  - Small cell carcinoma [Unknown]
  - Memory impairment [Unknown]
  - Dandruff [Not Recovered/Not Resolved]
  - Psoriasis [Unknown]
  - Pain [Unknown]
